FAERS Safety Report 8484629 (Version 4)
Quarter: 2022Q1

REPORT INFORMATION
  Report Type: Report from Study
  Country: US (occurrence: US)
  Receive Date: 20120330
  Receipt Date: 20220114
  Transmission Date: 20220424
  Serious: Yes (Hospitalization, Other)
  Sender: FDA-Public Use
  Company Number: US-PFIZER INC-2012071496

PATIENT
  Age: 46 Year
  Sex: Female
  Weight: 109 kg

DRUGS (2)
  1. SUNITINIB MALATE [Suspect]
     Active Substance: SUNITINIB MALATE
     Indication: Colon cancer
     Dosage: 50 MG, QD ON DAYS 1-28
     Route: 048
     Dates: start: 20120206
  2. PLAQUENIL [Suspect]
     Active Substance: HYDROXYCHLOROQUINE SULFATE
     Indication: Colon cancer
     Dosage: 200 MG, TWICE DAILY ON DAYS 4-42 (CYCLE1) AND 1-42 (CYCLE2)
     Route: 048
     Dates: start: 20120206

REACTIONS (4)
  - Colonic fistula [Not Recovered/Not Resolved]
  - Skin infection [Not Recovered/Not Resolved]
  - Skin ulcer [Not Recovered/Not Resolved]
  - Fatigue [Not Recovered/Not Resolved]

NARRATIVE: CASE EVENT DATE: 20120301
